FAERS Safety Report 25446028 (Version 1)
Quarter: 2025Q2

REPORT INFORMATION
  Report Type: Spontaneous
  Country: CN (occurrence: CN)
  Receive Date: 20250617
  Receipt Date: 20250617
  Transmission Date: 20250717
  Serious: Yes (Hospitalization)
  Sender: BAYER HEALTHCARE PHARMACEUTICALS INC.
  Company Number: CN-BAYER-2025A076787

PATIENT
  Age: 56 Year
  Sex: Male
  Weight: 76 kg

DRUGS (6)
  1. GLUCOBAY [Suspect]
     Active Substance: ACARBOSE
     Indication: Type 2 diabetes mellitus
     Dosage: 50 MG, TID
     Route: 048
     Dates: end: 20250517
  2. GLUCOBAY [Suspect]
     Active Substance: ACARBOSE
     Indication: Type 2 diabetes mellitus
     Dosage: 100 MG, TID
     Route: 048
     Dates: start: 20250518, end: 20250519
  3. METFORMIN [Suspect]
     Active Substance: METFORMIN HYDROCHLORIDE
     Indication: Type 2 diabetes mellitus
     Dosage: 0.5 G, BID
     Route: 048
     Dates: start: 2007, end: 2025
  4. DAPAGLIFLOZIN [Suspect]
     Active Substance: DAPAGLIFLOZIN
     Indication: Blood glucose abnormal
     Dosage: 10 MG, QD
     Route: 048
     Dates: start: 202503
  5. AMLODIPINE BESYLATE [Concomitant]
     Active Substance: AMLODIPINE BESYLATE
     Dosage: 5 MG, QD
     Route: 048
  6. METOPROLOL SUCCINATE [Concomitant]
     Active Substance: METOPROLOL SUCCINATE
     Dosage: 47.5 MG, QD
     Route: 048

REACTIONS (20)
  - Diabetic neuropathy [None]
  - Cerebral infarction [Recovering/Resolving]
  - Dizziness [Recovering/Resolving]
  - Diarrhoea [Recovered/Resolved]
  - Abdominal discomfort [None]
  - Frequent bowel movements [Recovered/Resolved]
  - Peripheral coldness [None]
  - Hypoaesthesia [None]
  - Pain in extremity [None]
  - Asthenia [None]
  - Vision blurred [None]
  - Chest discomfort [None]
  - Palpitations [None]
  - Chest pain [Recovering/Resolving]
  - Pruritus [None]
  - Lethargy [None]
  - Pollakiuria [None]
  - Blood glucose abnormal [None]
  - Diarrhoea [Recovered/Resolved]
  - Frequent bowel movements [Recovered/Resolved]

NARRATIVE: CASE EVENT DATE: 20250101
